FAERS Safety Report 14787663 (Version 2)
Quarter: 2019Q1

REPORT INFORMATION
  Report Type: Spontaneous
  Country: FR (occurrence: FR)
  Receive Date: 20180421
  Receipt Date: 20190306
  Transmission Date: 20190417
  Serious: Yes (Life-Threatening, Hospitalization, Other)
  Sender: FDA-Public Use
  Company Number: FR-AUROBINDO-AUR-APL-2018-020767

PATIENT

DRUGS (3)
  1. OMEPRAZOLE GASTRO-RESISTANT CAPSULE [Suspect]
     Active Substance: OMEPRAZOLE
     Indication: PRODUCT USED FOR UNKNOWN INDICATION
     Dosage: UNK
     Route: 048
     Dates: start: 20170110, end: 20170117
  2. IBUPROFEN SANDOZ [Suspect]
     Active Substance: IBUPROFEN
     Indication: PAIN
     Dosage: 1 DF, BID
     Route: 048
     Dates: start: 20170110, end: 20170116
  3. IBUPROFEN SANDOZ [Suspect]
     Active Substance: IBUPROFEN
     Indication: LIGAMENT SPRAIN
     Dosage: UNK
     Route: 048
     Dates: start: 20170110, end: 20170117

REACTIONS (20)
  - Ocular discomfort [Not Recovered/Not Resolved]
  - Eye pain [Unknown]
  - Pain in extremity [Unknown]
  - Skin lesion [Unknown]
  - Product dispensing error [Unknown]
  - Lymphopenia [Recovered/Resolved]
  - Hepatitis [Recovered/Resolved]
  - Off label use [Unknown]
  - Stevens-Johnson syndrome [Recovered/Resolved]
  - Hyponatraemia [Unknown]
  - Product administered to patient of inappropriate age [Unknown]
  - Skin disorder [Unknown]
  - Musculoskeletal chest pain [Unknown]
  - Hepatic pain [Unknown]
  - Hypochloraemia [Unknown]
  - Flank pain [Unknown]
  - Hypophosphataemia [Unknown]
  - Liver injury [Recovering/Resolving]
  - Cholestasis [Recovered/Resolved]
  - Pruritus [Recovered/Resolved]

NARRATIVE: CASE EVENT DATE: 20170118
